FAERS Safety Report 17069058 (Version 1)
Quarter: 2019Q4

REPORT INFORMATION
  Report Type: Spontaneous
  Country: JP (occurrence: JP)
  Receive Date: 20191124
  Receipt Date: 20191124
  Transmission Date: 20200122
  Serious: Yes (Death, Other)
  Sender: FDA-Public Use
  Company Number: JP-BAYER-2019-204705

PATIENT
  Age: 59 Year

DRUGS (1)
  1. NEXAVAR [Suspect]
     Active Substance: SORAFENIB
     Indication: HEPATOCELLULAR CARCINOMA
     Dosage: UNK
     Route: 048
     Dates: start: 2011, end: 2016

REACTIONS (9)
  - Death [Fatal]
  - Alanine aminotransferase abnormal [None]
  - Platelet count abnormal [None]
  - Hepatocellular carcinoma [None]
  - Decreased appetite [None]
  - Aspartate aminotransferase abnormal [None]
  - General physical health deterioration [None]
  - Taste disorder [None]
  - Palmar-plantar erythrodysaesthesia syndrome [None]

NARRATIVE: CASE EVENT DATE: 20160630
